FAERS Safety Report 7967015-8 (Version None)
Quarter: 2011Q4

REPORT INFORMATION
  Report Type: 
  Country: None (occurrence: None)
  Receive Date: 20111209
  Receipt Date: 20111130
  Transmission Date: 20120403
  Serious: Yes (Hospitalization, Other)
  Sender: FDA-Public Use
  Company Number: US-JNJFOC-20110612123

PATIENT
  Sex: Male
  Weight: 129.28 kg

DRUGS (5)
  1. STELARA [Suspect]
     Indication: PSORIATIC ARTHROPATHY
     Route: 058
     Dates: start: 20091028
  2. METHOTREXATE [Concomitant]
     Route: 048
  3. STELARA [Suspect]
     Route: 058
     Dates: start: 20100427
  4. FOLIC ACID [Concomitant]
  5. ASPIRIN [Concomitant]
     Route: 048

REACTIONS (5)
  - HYPERLIPIDAEMIA [None]
  - HYPERTENSION [None]
  - MYOCARDIAL INFARCTION [None]
  - CARDIOMYOPATHY [None]
  - CORONARY ARTERY DISEASE [None]
